FAERS Safety Report 5623904-0 (Version None)
Quarter: 2008Q1

REPORT INFORMATION
  Report Type: 
  Country: None (occurrence: None)
  Receive Date: 20080207
  Receipt Date: 20080128
  Transmission Date: 20080703
  Serious: Yes (Hospitalization)
  Sender: FDA-Public Use
  Company Number: 2007-03609

PATIENT
  Age: 51 Year
  Sex: Female

DRUGS (5)
  1. VELCADE [Suspect]
     Indication: MULTIPLE MYELOMA
     Dosage: 2.20 MG, INTRAVENOUS
     Route: 042
     Dates: start: 20061113, end: 20071024
  2. ACENOCOUMAROL (ACENOCOUMAROL) [Concomitant]
  3. AMLODIPINE [Concomitant]
  4. FOLIC ACID [Concomitant]
  5. BISOPROLOL FUMARATE [Concomitant]

REACTIONS (1)
  - PNEUMOTHORAX [None]
